FAERS Safety Report 8152549-6 (Version None)
Quarter: 2012Q1

REPORT INFORMATION
  Report Type: 
  Country: None (occurrence: None)
  Receive Date: 20120221
  Receipt Date: 20120211
  Transmission Date: 20120608
  Serious: Yes (Hospitalization)
  Sender: FDA-Public Use
  Company Number: US-BRISTOL-MYERS SQUIBB COMPANY-16221525

PATIENT
  Age: 50 Year
  Sex: Male
  Weight: 69 kg

DRUGS (1)
  1. IPILIMUMAB [Suspect]
     Indication: MALIGNANT MELANOMA
     Dosage: LAST ADMINISTERED DT:17OCT2011
     Route: 042
     Dates: start: 20111017

REACTIONS (3)
  - DEHYDRATION [None]
  - COLITIS [None]
  - PANCREATITIS [None]
